FAERS Safety Report 8141421-3 (Version None)
Quarter: 2012Q1

REPORT INFORMATION
  Report Type: 
  Country: None (occurrence: None)
  Receive Date: 20120216
  Receipt Date: 20120213
  Transmission Date: 20120608
  Serious: Yes (Death)
  Sender: FDA-Public Use
  Company Number: PHEH2012US002760

PATIENT
  Sex: Male
  Weight: 100.4 kg

DRUGS (11)
  1. NOVOGESIC [Concomitant]
  2. INSULIN [Concomitant]
  3. VALTREX [Concomitant]
  4. PREDNISONE [Concomitant]
  5. PRILOSEC [Concomitant]
  6. ACTIGALL [Concomitant]
  7. EXJADE [Suspect]
     Indication: HAEMOCHROMATOSIS
     Dosage: 500 MG, BID
     Route: 048
     Dates: start: 20111001
  8. CARVEDILOL [Concomitant]
  9. FOLIC ACID [Concomitant]
  10. MAGNESIUM [Concomitant]
  11. POSACONAZOLE [Concomitant]

REACTIONS (2)
  - NECROTISING FASCIITIS [None]
  - SEPSIS [None]
